FAERS Safety Report 17467449 (Version 3)
Quarter: 2020Q4

REPORT INFORMATION
  Report Type: Spontaneous
  Country: US (occurrence: US)
  Receive Date: 20200227
  Receipt Date: 20201207
  Transmission Date: 20210113
  Serious: No
  Sender: FDA-Public Use
  Company Number: US-PFIZER INC-2020085508

PATIENT
  Age: 76 Year
  Sex: Female
  Weight: 68.04 kg

DRUGS (5)
  1. PREDNISONE. [Concomitant]
     Active Substance: PREDNISONE
     Indication: BURNING SENSATION
     Dosage: 15 MG, UNK
     Dates: start: 20180426
  2. PREDNISONE. [Concomitant]
     Active Substance: PREDNISONE
     Dosage: 1 MG, 3X/DAY
     Route: 048
  3. GABAPENTIN. [Suspect]
     Active Substance: GABAPENTIN
     Indication: PAIN IN EXTREMITY
     Dosage: 100 MG, 3X/DAY
     Dates: start: 20150724, end: 20190625
  4. LUMIGAN [Concomitant]
     Active Substance: BIMATOPROST
     Indication: GLAUCOMA
     Dosage: 1 DROP, 1X/DAY (ONE DROP IN EYE DAILY AT NIGHT)
     Route: 047
     Dates: start: 20151022
  5. GABAPENTIN. [Suspect]
     Active Substance: GABAPENTIN
     Indication: AUTOIMMUNE DISORDER

REACTIONS (4)
  - Weight decreased [Unknown]
  - Drug ineffective for unapproved indication [Unknown]
  - Off label use [Unknown]
  - Anaemia [Unknown]

NARRATIVE: CASE EVENT DATE: 20150724
